FAERS Safety Report 12039119 (Version 1)
Quarter: 2016Q1

REPORT INFORMATION
  Report Type: Spontaneous
  Country: US (occurrence: None)
  Receive Date: 20160205
  Receipt Date: 20160205
  Transmission Date: 20160526
  Serious: Yes (Other)
  Sender: FDA-Public Use
  Company Number: None

PATIENT
  Age: 1 Year
  Sex: Male
  Weight: 14.06 kg

DRUGS (1)
  1. KARBINAL ER [Suspect]
     Active Substance: CARBINOXAMINE MALEATE
     Indication: MULTIPLE ALLERGIES
     Dosage: 2.5ML, EVERY 12 HRS, PO BY MOUTH
     Route: 048
     Dates: start: 20160105

REACTIONS (4)
  - Fall [None]
  - Seizure [None]
  - Eye movement disorder [None]
  - Contusion [None]

NARRATIVE: CASE EVENT DATE: 20160113
